FAERS Safety Report 5478385-7 (Version None)
Quarter: 2007Q4

REPORT INFORMATION
  Report Type: 
  Country: None (occurrence: None)
  Receive Date: 20071005
  Receipt Date: 20070926
  Transmission Date: 20080405
  Serious: Yes (Hospitalization)
  Sender: FDA-Public Use
  Company Number: B0488726A

PATIENT
  Age: 88 Year
  Sex: Female

DRUGS (7)
  1. PAROXETINE [Suspect]
     Route: 048
  2. PREVISCAN [Suspect]
     Indication: ATRIAL FIBRILLATION
     Route: 048
     Dates: end: 20070303
  3. CORDARONE [Suspect]
     Indication: ATRIAL FIBRILLATION
     Route: 048
  4. SPECIAFOLDINE [Suspect]
     Route: 048
  5. OMEPRAZOLE [Suspect]
     Route: 048
  6. TIENAM [Suspect]
     Route: 048
     Dates: end: 20070303
  7. DELURSAN [Suspect]
     Dosage: 250MG PER DAY
     Route: 048

REACTIONS (11)
  - ABDOMINAL DISTENSION [None]
  - ABDOMINAL PAIN [None]
  - ANAEMIA [None]
  - ASCITES [None]
  - COLONIC HAEMATOMA [None]
  - CONSTIPATION [None]
  - FAECALOMA [None]
  - INTERNATIONAL NORMALISED RATIO INCREASED [None]
  - PALLOR [None]
  - RENAL FAILURE ACUTE [None]
  - VOMITING [None]
